FAERS Safety Report 9786713 (Version 1)
Quarter: 2013Q4

REPORT INFORMATION
  Report Type: Spontaneous
  Country: IT (occurrence: IT)
  Receive Date: 20131227
  Receipt Date: 20131227
  Transmission Date: 20140711
  Serious: Yes (Hospitalization)
  Sender: FDA-Public Use
  Company Number: IT-PFIZER INC-2013367049

PATIENT
  Age: 60 Year
  Sex: Male

DRUGS (2)
  1. CISPLATINO TEVA [Suspect]
     Dosage: UNK
  2. GEMZAR [Concomitant]
     Dosage: 1900 MG, DAILY
     Route: 042

REACTIONS (1)
  - Chest pain [Recovered/Resolved with Sequelae]
